FAERS Safety Report 7093020-2 (Version None)
Quarter: 2010Q4

REPORT INFORMATION
  Report Type: 
  Country: None (occurrence: None)
  Receive Date: 20101109
  Receipt Date: 20101109
  Transmission Date: 20110411
  Serious: Yes (Disabling)
  Sender: FDA-Public Use
  Company Number: None

PATIENT
  Age: 81 Year
  Sex: Female
  Weight: 65.318 kg

DRUGS (1)
  1. METFORMIN HCL [Suspect]
     Indication: DIABETES MELLITUS MANAGEMENT
     Dates: start: 20100607, end: 20100615

REACTIONS (7)
  - AGEUSIA [None]
  - APHAGIA [None]
  - GLOSSODYNIA [None]
  - RASH MORBILLIFORM [None]
  - STOMATITIS [None]
  - TONGUE DISORDER [None]
  - WEIGHT DECREASED [None]
